FAERS Safety Report 8496931-6 (Version None)
Quarter: 2012Q3

REPORT INFORMATION
  Report Type: 
  Country: None (occurrence: None)
  Receive Date: 20120709
  Receipt Date: 20120625
  Transmission Date: 20120928
  Serious: Yes (Other)
  Sender: FDA-Public Use
  Company Number: CHPA2012CA014070

PATIENT
  Sex: Female

DRUGS (1)
  1. OTRIVIN [Suspect]
     Indication: UPPER RESPIRATORY TRACT CONGESTION
     Dosage: UNK, ONCE PER NIGHT
     Route: 045
     Dates: start: 19820101

REACTIONS (2)
  - INCORRECT DRUG ADMINISTRATION DURATION [None]
  - WITHDRAWAL SYNDROME [None]
